FAERS Safety Report 9100570 (Version 2)
Quarter: 2014Q2

REPORT INFORMATION
  Report Type: Spontaneous
  Country: US (occurrence: US)
  Receive Date: 20130215
  Receipt Date: 20140501
  Transmission Date: 20141212
  Serious: Yes (Hospitalization, Congenital Anomaly)
  Sender: FDA-Public Use
  Company Number: US-JNJFOC-20130206571

PATIENT
  Sex: Female

DRUGS (3)
  1. TOPAMAX [Suspect]
     Indication: FOETAL EXPOSURE DURING PREGNANCY
     Route: 064
  2. KEPPRA [Suspect]
     Indication: FOETAL EXPOSURE DURING PREGNANCY
     Route: 064
  3. SYNTHROID [Suspect]
     Indication: FOETAL EXPOSURE DURING PREGNANCY
     Route: 064

REACTIONS (5)
  - Dyskinesia [Recovering/Resolving]
  - Meningomyelocele [Recovered/Resolved]
  - Subependymal nodular heterotopia [Recovering/Resolving]
  - Arnold-Chiari malformation [Recovering/Resolving]
  - Neurogenic bladder [Recovering/Resolving]
